FAERS Safety Report 23157394 (Version 1)
Quarter: 2023Q4

REPORT INFORMATION
  Report Type: Spontaneous
  Country: US (occurrence: US)
  Receive Date: 20231108
  Receipt Date: 20231108
  Transmission Date: 20240110
  Serious: No
  Sender: FDA-Public Use
  Company Number: US-JNJFOC-20231023703

PATIENT
  Sex: Female

DRUGS (2)
  1. PEPCID AC [Suspect]
     Active Substance: FAMOTIDINE
     Indication: Prophylaxis
     Route: 065
     Dates: start: 20231007
  2. PEPCID COMPLETE [Concomitant]
     Active Substance: CALCIUM CARBONATE\FAMOTIDINE\MAGNESIUM HYDROXIDE
     Indication: Prophylaxis
     Route: 065

REACTIONS (1)
  - Wrong product administered [Unknown]

NARRATIVE: CASE EVENT DATE: 20231007
